FAERS Safety Report 9825993 (Version 1)
Quarter: 2013Q4

REPORT INFORMATION
  Report Type: Spontaneous
  Country: US (occurrence: None)
  Receive Date: 20131107
  Receipt Date: 20131107
  Transmission Date: 20140711
  Serious: Yes (Other)
  Sender: FDA-Public Use
  Company Number: 2013AP004485

PATIENT
  Age: 69 Year
  Sex: Male

DRUGS (1)
  1. PAROXETINE HCL [Suspect]

REACTIONS (2)
  - Serotonin syndrome [None]
  - Withdrawal syndrome [None]
